FAERS Safety Report 21996314 (Version 1)
Quarter: 2023Q1

REPORT INFORMATION
  Report Type: Spontaneous
  Country: US (occurrence: US)
  Receive Date: 20230215
  Receipt Date: 20230215
  Transmission Date: 20230418
  Serious: No
  Sender: FDA-Public Use
  Company Number: US-ELI_LILLY_AND_COMPANY-US202302006742

PATIENT
  Sex: Female

DRUGS (4)
  1. EMGALITY [Suspect]
     Active Substance: GALCANEZUMAB-GNLM
     Indication: Product used for unknown indication
     Dosage: 120 MG, UNKNOWN
     Route: 065
  2. EMGALITY [Suspect]
     Active Substance: GALCANEZUMAB-GNLM
     Indication: Product used for unknown indication
     Dosage: 120 MG, UNKNOWN
     Route: 065
  3. EMGALITY [Suspect]
     Active Substance: GALCANEZUMAB-GNLM
     Dosage: 120 MG, UNKNOWN
     Route: 065
  4. EMGALITY [Suspect]
     Active Substance: GALCANEZUMAB-GNLM
     Dosage: 120 MG, UNKNOWN
     Route: 065

REACTIONS (1)
  - Injection site pain [Unknown]
